FAERS Safety Report 8531523-1 (Version None)
Quarter: 2012Q3

REPORT INFORMATION
  Report Type: 
  Country: None (occurrence: None)
  Receive Date: 20120723
  Receipt Date: 20120712
  Transmission Date: 20120928
  Serious: Yes (Other)
  Sender: FDA-Public Use
  Company Number: JP-VERTEX PHARMACEUTICALS INC.-AE-2012-009768

PATIENT
  Age: 67 Year
  Sex: Male

DRUGS (9)
  1. REBETOL [Concomitant]
     Route: 048
     Dates: start: 20120710
  2. REBETOL [Concomitant]
     Route: 048
     Dates: start: 20120626, end: 20120710
  3. PEG-INTRON [Concomitant]
     Route: 058
     Dates: start: 20120619
  4. PEG-INTRON [Concomitant]
     Route: 058
     Dates: start: 20120626
  5. TELAVIC (TELAPREVIR) [Suspect]
     Route: 048
     Dates: start: 20120626
  6. URSO 250 [Concomitant]
     Route: 048
  7. REBETOL [Concomitant]
     Indication: HEPATITIS C
     Route: 048
     Dates: start: 20120619, end: 20120622
  8. TELAVIC (TELAPREVIR) [Suspect]
     Indication: HEPATITIS C
     Route: 048
     Dates: start: 20120619, end: 20120622
  9. ALLOPURINOL [Concomitant]
     Route: 048

REACTIONS (1)
  - RENAL IMPAIRMENT [None]
